FAERS Safety Report 20716982 (Version 2)
Quarter: 2022Q3

REPORT INFORMATION
  Report Type: Spontaneous
  Country: AU (occurrence: None)
  Receive Date: 20220417
  Receipt Date: 20220916
  Transmission Date: 20221027
  Serious: Yes (Other)
  Sender: FDA-Public Use
  Company Number: AU-ROCHE-3070136

PATIENT
  Age: 75 Year
  Sex: Female

DRUGS (1)
  1. TECENTRIQ [Suspect]
     Active Substance: ATEZOLIZUMAB
     Indication: Product used for unknown indication
     Route: 065

REACTIONS (6)
  - Dyspepsia [Unknown]
  - Heart rate increased [Unknown]
  - Vomiting [Unknown]
  - Flushing [Unknown]
  - Lip swelling [Unknown]
  - Swollen tongue [Unknown]
